FAERS Safety Report 25954773 (Version 1)
Quarter: 2025Q4

REPORT INFORMATION
  Report Type: Spontaneous
  Country: GB (occurrence: GB)
  Receive Date: 20251024
  Receipt Date: 20251024
  Transmission Date: 20260117
  Serious: Yes (Hospitalization, Other)
  Sender: TEVA
  Company Number: None

PATIENT
  Age: 38 Year
  Sex: Female

DRUGS (2)
  1. EPIRUBICIN [Suspect]
     Active Substance: EPIRUBICIN
     Indication: Product used for unknown indication
     Dosage: 90MG/45ML PRE-FILLED SYRINGES, CYCLE 2 DAY 1
     Route: 042
  2. CYCLOPHOSPHAMIDE [Suspect]
     Active Substance: CYCLOPHOSPHAMIDE
     Indication: Product used for unknown indication
     Dosage: 600MG/MY,  600MG/30ML PRE-FILLED SYRINGES
     Route: 042

REACTIONS (6)
  - Renal pain [Unknown]
  - Back pain [Unknown]
  - Abdominal pain [Unknown]
  - Diarrhoea [Unknown]
  - Chest pain [Unknown]
  - Flank pain [Recovered/Resolved]
